FAERS Safety Report 24183724 (Version 3)
Quarter: 2024Q4

REPORT INFORMATION
  Report Type: Spontaneous
  Country: CO (occurrence: CO)
  Receive Date: 20240807
  Receipt Date: 20241014
  Transmission Date: 20250114
  Serious: No
  Sender: PFIZER
  Company Number: CO-PFIZER INC-PV202400100468

PATIENT
  Age: 10 Year
  Sex: Female

DRUGS (1)
  1. GENOTROPIN [Suspect]
     Active Substance: SOMATROPIN
     Dosage: 0.8 MG, DAILY
     Route: 058

REACTIONS (1)
  - Device mechanical issue [Unknown]
